FAERS Safety Report 9300484 (Version 1)
Quarter: 2012Q4

REPORT INFORMATION
  Report Type: Spontaneous
  Country: US (occurrence: None)
  Receive Date: 20121116
  Receipt Date: 20121116
  Transmission Date: 20130627
  Serious: Yes (Other)
  Sender: FDA-Public Use
  Company Number: ADR-2012-01818

PATIENT
  Sex: Male

DRUGS (1)
  1. BACLOFEN INTRATHECAL [Suspect]
     Indication: SPASTICITY

REACTIONS (5)
  - Somnolence [None]
  - Convulsion [None]
  - Device leakage [None]
  - Implant site swelling [None]
  - Injection site swelling [None]
